FAERS Safety Report 8456405-5 (Version None)
Quarter: 2012Q2

REPORT INFORMATION
  Report Type: 
  Country: None (occurrence: None)
  Receive Date: 20120621
  Receipt Date: 20120619
  Transmission Date: 20120825
  Serious: No
  Sender: FDA-Public Use
  Company Number: US-B.I. PHARMACEUTICALS,INC./RIDGEFIELD-2012-BP-14091BP

PATIENT
  Age: 75 Year
  Sex: Male

DRUGS (1)
  1. COMBIVENT [Suspect]

REACTIONS (3)
  - CHEST DISCOMFORT [None]
  - VOMITING [None]
  - DECREASED APPETITE [None]
